FAERS Safety Report 21144215 (Version 1)
Quarter: 2022Q3

REPORT INFORMATION
  Report Type: Spontaneous
  Country: US (occurrence: US)
  Receive Date: 20220728
  Receipt Date: 20220728
  Transmission Date: 20221026
  Serious: No
  Sender: FDA-Public Use
  Company Number: US-PFIZER INC-PV202200030374

PATIENT
  Age: 57 Year
  Sex: Female

DRUGS (1)
  1. IBRANCE [Suspect]
     Active Substance: PALBOCICLIB
     Dosage: UNK

REACTIONS (7)
  - Product dose omission issue [Unknown]
  - Full blood count abnormal [Unknown]
  - Fatigue [Unknown]
  - Asthenia [Unknown]
  - Pelvic pain [Unknown]
  - Pain in extremity [Unknown]
  - Back pain [Unknown]
